FAERS Safety Report 23937825 (Version 1)
Quarter: 2024Q2

REPORT INFORMATION
  Report Type: Spontaneous
  Country: PL (occurrence: PL)
  Receive Date: 20240604
  Receipt Date: 20240604
  Transmission Date: 20240716
  Serious: Yes (Life-Threatening, Other)
  Sender: FDA-Public Use
  Company Number: None

PATIENT
  Age: 16 Year
  Sex: Female
  Weight: 45 kg

DRUGS (3)
  1. PAROXETINE [Suspect]
     Active Substance: PAROXETINE
     Indication: Product used for unknown indication
     Dosage: 1 GRAM,1 TOTAL
     Route: 048
     Dates: start: 20200525, end: 20200525
  2. LEVOTHYROXINE [Suspect]
     Active Substance: LEVOTHYROXINE\LEVOTHYROXINE SODIUM
     Indication: Product used for unknown indication
     Dosage: 4.4 MILLIGRAM, 1 TOTAL
     Route: 048
     Dates: start: 20200525, end: 20200525
  3. OPIPRAMOL [Suspect]
     Active Substance: OPIPRAMOL
     Indication: Product used for unknown indication
     Dosage: 5.3 GRAM, 1 TOTAL
     Route: 048
     Dates: start: 20200525, end: 20200525

REACTIONS (3)
  - Toxicity to various agents [Recovering/Resolving]
  - Suicide attempt [Recovering/Resolving]
  - Drug abuse [Unknown]

NARRATIVE: CASE EVENT DATE: 20200525
